FAERS Safety Report 5949093-0 (Version None)
Quarter: 2008Q4

REPORT INFORMATION
  Report Type: 
  Country: None (occurrence: None)
  Receive Date: 20081111
  Receipt Date: 20081106
  Transmission Date: 20090506
  Serious: Yes (Hospitalization)
  Sender: FDA-Public Use
  Company Number: US-B.I. PHARMACEUTICALS,INC./RIDGEFIELD-2006-BP-05725BP

PATIENT
  Sex: Female

DRUGS (7)
  1. COMBIVENT [Suspect]
     Indication: CHRONIC OBSTRUCTIVE PULMONARY DISEASE
     Route: 055
     Dates: start: 20020101, end: 20081014
  2. COMBIVENT [Suspect]
     Indication: ASTHMA
  3. FORADIL [Concomitant]
  4. ASMANEX TWISTHALER [Concomitant]
  5. SINGULAIR [Concomitant]
  6. PREDNISONE TAB [Concomitant]
  7. FLOVENT [Concomitant]
     Indication: CHRONIC OBSTRUCTIVE PULMONARY DISEASE

REACTIONS (10)
  - DRUG EFFECT DECREASED [None]
  - DRUG INEFFECTIVE [None]
  - DYSPNOEA [None]
  - EXERCISE TOLERANCE DECREASED [None]
  - INFLAMMATION [None]
  - LUNG DISORDER [None]
  - PNEUMONIA [None]
  - PULMONARY CONGESTION [None]
  - PULMONARY FUNCTION TEST DECREASED [None]
  - RESPIRATORY TRACT IRRITATION [None]
